FAERS Safety Report 17616656 (Version 1)
Quarter: 2020Q2

REPORT INFORMATION
  Report Type: Spontaneous
  Country: GB (occurrence: GB)
  Receive Date: 20200402
  Receipt Date: 20200402
  Transmission Date: 20200713
  Serious: Yes (Hospitalization, Other)
  Sender: FDA-Public Use
  Company Number: GB-SA-2020SA076277

PATIENT
  Age: 48 Year
  Sex: Female

DRUGS (35)
  1. LETROZOLE. [Suspect]
     Active Substance: LETROZOLE
     Indication: BREAST CANCER
     Dosage: 2.5 MG, QD
     Route: 048
     Dates: start: 20160308, end: 20161123
  2. CLOTRIMAZOLE. [Concomitant]
     Active Substance: CLOTRIMAZOLE
     Dosage: 1 %, 0.33 DAYS
     Route: 061
     Dates: start: 20170918, end: 20170920
  3. CHLORPHENIRAMIN [Concomitant]
     Active Substance: CHLORPHENIRAMINE MALEATE
     Indication: PROPHYLAXIS
     Dosage: 10 MG; NUMBER OF UNITS IN THE INTERVAL: 0.33 WK
     Route: 042
     Dates: start: 20151022
  4. ZOLEDRONIC ACID [Concomitant]
     Active Substance: ZOLEDRONIC ACID
     Dosage: 4 MG, QM
     Route: 042
     Dates: start: 20151022, end: 20170713
  5. PERTUZUMAB. [Suspect]
     Active Substance: PERTUZUMAB
     Dosage: 420 MG, Q3W (MAINTAINANCE DOSE)
     Route: 042
     Dates: start: 20151120, end: 20161104
  6. ZOPICLONE [Concomitant]
     Active Substance: ZOPICLONE
     Dosage: 3.75 MG
     Route: 048
     Dates: start: 20170825, end: 20170919
  7. DEXAMETHASON [DEXAMETHASONE] [Concomitant]
     Active Substance: DEXAMETHASONE
     Dosage: 8 MG, BID, FOR 3 DAYS STARTING DAY BEFORE CHEMO)
     Route: 048
     Dates: start: 20151210, end: 20160222
  8. MICONAZOLE. [Concomitant]
     Active Substance: MICONAZOLE
     Dosage: 20 MG
     Route: 048
     Dates: start: 20170918, end: 20170920
  9. TRASTUZUMAB. [Suspect]
     Active Substance: TRASTUZUMAB
     Indication: BREAST CANCER
     Dosage: 525 MG, Q3W (LOADING DOSE)
     Route: 042
     Dates: start: 20151023, end: 20151023
  10. FILGRASTIM [Concomitant]
     Active Substance: FILGRASTIM
     Dosage: 300 MG, QD FOR SEVEN DAYS FROM DAY 4 OF CYCLE
     Route: 058
     Dates: start: 20151210, end: 20160305
  11. MORPHINE SULPHATE [Concomitant]
     Active Substance: MORPHINE SULFATE
     Dosage: 2.5 MG
     Route: 058
     Dates: start: 20170918, end: 20170920
  12. NYSTATIN. [Concomitant]
     Active Substance: NYSTATIN
     Dosage: 1000 UNIT; NUMBER OF UNITS IN THE INTERVAL: 0.25 DAY
     Route: 048
     Dates: start: 20170904, end: 20170919
  13. GLYCOPYRRONIUM [Concomitant]
     Active Substance: GLYCOPYRRONIUM
     Dosage: 400 UG
     Route: 058
     Dates: start: 20170919, end: 20170920
  14. DEXAMETHASON [DEXAMETHASONE] [Concomitant]
     Active Substance: DEXAMETHASONE
     Dosage: 4 MG; NUMBER OF UNITS IN THE INTERVAL: 0.5 DAY
     Route: 048
     Dates: start: 20170809, end: 20170919
  15. DOCETAXEL. [Suspect]
     Active Substance: DOCETAXEL
     Dosage: 108 MG, Q3W (PLANNED NUMBER OF CYCLES COMPLETED   )
     Route: 042
     Dates: start: 20151120, end: 20160222
  16. TRASTUZUMAB. [Suspect]
     Active Substance: TRASTUZUMAB
     Dosage: 400 MG, Q3W MAINTAINANCE DOSE
     Route: 042
     Dates: start: 20151120, end: 20161104
  17. LANSOPRAZOLE. [Concomitant]
     Active Substance: LANSOPRAZOLE
     Dosage: 30 MG, QD
     Route: 048
     Dates: start: 20170728, end: 20170905
  18. HALOPERIDOL. [Concomitant]
     Active Substance: HALOPERIDOL
     Dosage: 1.5 MG; NUMBER OF UNITS IN THE INTERVAL: 0.5 DAY
     Route: 048
     Dates: start: 20170810, end: 20170909
  19. MIGRALEVE [BUCLIZINE HYDROCHLORIDE;CODEINE PHOSPHATE;PARACETAMOL] [Concomitant]
     Dosage: UNK UNK, PRN
     Route: 048
     Dates: start: 2017
  20. TRASTUZUMAB. [Suspect]
     Active Substance: TRASTUZUMAB
     Dosage: 240 MG, Q3W
     Route: 042
     Dates: start: 20161201, end: 20170302
  21. TRASTUZUMAB. [Suspect]
     Active Substance: TRASTUZUMAB
     Dosage: 200 MG, Q3W
     Route: 042
     Dates: start: 20170330, end: 20170608
  22. PERTUZUMAB. [Suspect]
     Active Substance: PERTUZUMAB
     Indication: BREAST CANCER
     Dosage: 840 MG, Q3W (LOADING DOSE)
     Route: 042
     Dates: start: 20151023, end: 20151023
  23. MIDAZOLAM. [Concomitant]
     Active Substance: MIDAZOLAM
     Dosage: 2.5 MG
     Route: 058
     Dates: start: 20170918, end: 20170920
  24. ONDANSETRON [Concomitant]
     Active Substance: ONDANSETRON
     Dosage: 8 MG; NUMBER OF UNITS IN THE INTERVAL: 0.33 DAYS
     Route: 048
     Dates: start: 20170809, end: 20170812
  25. HYDROCORTISON [HYDROCORTISONE] [Concomitant]
     Indication: PROPHYLAXIS
     Dosage: 100 MG; NUMBER OF UNITS IN THE INTERVAL : 0.33 WEEK
     Route: 042
     Dates: start: 20151022, end: 20160222
  26. DEXAMETHASON [DEXAMETHASONE] [Concomitant]
     Active Substance: DEXAMETHASONE
     Indication: PROPHYLAXIS
     Dosage: 2 MG, QD
     Route: 048
     Dates: start: 20170728, end: 20170803
  27. DOCETAXEL. [Suspect]
     Active Substance: DOCETAXEL
     Indication: BREAST CANCER
     Dosage: 132 MG, Q3W (LOADING DOSE)
     Route: 042
     Dates: start: 20151022, end: 20151022
  28. TRIMETHOPRIM. [Concomitant]
     Active Substance: TRIMETHOPRIM
     Dosage: 50 MG
     Dates: start: 20170915, end: 20170919
  29. FILGRASTIM [Concomitant]
     Active Substance: FILGRASTIM
     Dosage: 300 UG, QD
     Route: 058
     Dates: start: 20151120, end: 20151127
  30. DOMPERIDONE [Concomitant]
     Active Substance: DOMPERIDONE
     Dosage: 10 MG, 0.33 DAY
     Route: 048
     Dates: start: 20170810, end: 20170919
  31. CALCICHEW D3 FORTE [Concomitant]
     Active Substance: CALCIUM\CHOLECALCIFEROL
     Indication: HYPOCALCAEMIA
     Route: 048
     Dates: start: 20151231, end: 20170919
  32. HALOPERIDOL. [Concomitant]
     Active Substance: HALOPERIDOL
     Dosage: 1.5 MG; DURATION OF DRUG ADMINISTRATION (NUMBER): 2 DAYS
     Route: 058
     Dates: start: 20170919, end: 20170920
  33. CHLORPHENAMINE MALEATE [Concomitant]
     Active Substance: CHLORPHENIRAMINE MALEATE
     Indication: PROPHYLAXIS
     Dosage: 10 MG, EVERY 0.33 WEEKS
     Route: 042
     Dates: start: 20151022
  34. DEXAMETHASON [DEXAMETHASONE] [Concomitant]
     Active Substance: DEXAMETHASONE
     Dosage: 8 MG; NUMBER OF UNITS IN THE INTERVAL: 0.5 DAY
     Route: 048
     Dates: start: 20170803, end: 20170809
  35. CHLORAMPHENICOL [Concomitant]
     Active Substance: CHLORAMPHENICOL
     Dosage: 1 %
     Route: 047
     Dates: start: 20170918, end: 20170920

REACTIONS (1)
  - Hydronephrosis [Recovered/Resolved]

NARRATIVE: CASE EVENT DATE: 20161109
